FAERS Safety Report 11480189 (Version 1)
Quarter: 2015Q3

REPORT INFORMATION
  Report Type: Spontaneous
  Country: US (occurrence: US)
  Receive Date: 20150909
  Receipt Date: 20150909
  Transmission Date: 20151125
  Serious: No
  Sender: FDA-Public Use
  Company Number: US-JAZZ-2014-US-014638

PATIENT
  Sex: Female
  Weight: 90.7 kg

DRUGS (4)
  1. MS CONTIN SANKYO [Concomitant]
     Indication: RHEUMATOID ARTHRITIS
  2. XYREM [Suspect]
     Active Substance: SODIUM OXYBATE
     Indication: NARCOLEPSY
     Dosage: 4.5 G, BID
     Route: 048
     Dates: start: 201303
  3. MS CONTIN SANKYO [Concomitant]
     Indication: SYSTEMIC LUPUS ERYTHEMATOSUS
     Route: 048
  4. XYREM [Suspect]
     Active Substance: SODIUM OXYBATE
     Indication: CATAPLEXY

REACTIONS (2)
  - Gastrointestinal hypermotility [Not Recovered/Not Resolved]
  - Sudden onset of sleep [Not Recovered/Not Resolved]
